FAERS Safety Report 9639772 (Version 2)
Quarter: 2013Q4

REPORT INFORMATION
  Report Type: Spontaneous
  Country: US (occurrence: US)
  Receive Date: 20131023
  Receipt Date: 20131121
  Transmission Date: 20140711
  Serious: Yes (Other)
  Sender: FDA-Public Use
  Company Number: US-MERCK-1310USA008128

PATIENT
  Age: 41 Year
  Sex: Female

DRUGS (2)
  1. PEGINTRON [Suspect]
     Indication: HEPATITIS C
     Dosage: REDIPEN, 150 MCG, ONCE A WEEK
     Route: 058
     Dates: start: 201307
  2. REBETOL [Suspect]
     Dosage: UNK
     Route: 048

REACTIONS (6)
  - Surgery [Unknown]
  - Systemic lupus erythematosus [Not Recovered/Not Resolved]
  - Adverse event [Unknown]
  - Haemoglobin decreased [Not Recovered/Not Resolved]
  - Dizziness [Not Recovered/Not Resolved]
  - Rheumatoid arthritis [Not Recovered/Not Resolved]
